FAERS Safety Report 13708130 (Version 2)
Quarter: 2017Q3

REPORT INFORMATION
  Report Type: Spontaneous
  Country: US (occurrence: US)
  Receive Date: 20170630
  Receipt Date: 20170802
  Transmission Date: 20171127
  Serious: No
  Sender: FDA-Public Use
  Company Number: US-PFIZER INC-2017279422

PATIENT
  Sex: Female

DRUGS (1)
  1. CHAPSTICK CLASSICS ORIGINAL [Suspect]
     Active Substance: PADIMATE O\PETROLATUM
     Dosage: UNK

REACTIONS (2)
  - Limb injury [Unknown]
  - Product use complaint [Unknown]
